FAERS Safety Report 8925028 (Version 3)
Quarter: 2015Q1

REPORT INFORMATION
  Report Type: Spontaneous
  Country: JP (occurrence: None)
  Receive Date: 20121116
  Receipt Date: 20150316
  Transmission Date: 20150721
  Serious: Yes (Hospitalization, Other)
  Sender: FDA-Public Use
  Company Number: 2009JP005343

PATIENT
  Age: 27 Year
  Sex: Female
  Weight: 54 kg

DRUGS (12)
  1. BREDININ (MIZORIBINE) [Concomitant]
     Active Substance: MIZORIBINE
  2. GASLON N (IRSOGLADINE MALEATE) [Concomitant]
  3. EPADEL (ETHYL ICOSAPENTATE) [Concomitant]
     Active Substance: ETHYL ICOSAPENTATE
  4. OMEPRAL /00661201/ (OMEPRAZOLE) [Concomitant]
  5. TANATRIL (IMIDAPRIL HYDROCHLORIDE) [Concomitant]
     Active Substance: IMIDAPRIL HYDROCHLORIDE
  6. PERSANTIN (DIPYRIDAMOLE) [Concomitant]
  7. PREDNISOLONE. [Suspect]
     Active Substance: PREDNISOLONE
     Indication: LUPUS NEPHRITIS
     Route: 048
     Dates: start: 20100421, end: 20110427
  8. GASTER D (FAMOTIDINE) [Concomitant]
  9. FERROMIA (SODIUM FERROUS CITRATE) [Concomitant]
  10. PROGRAF [Suspect]
     Active Substance: TACROLIMUS\TACROLIMUS ANHYDROUS
     Indication: LUPUS NEPHRITIS
     Route: 048
     Dates: start: 20070730, end: 20070812
  11. MEDROL [Suspect]
     Active Substance: METHYLPREDNISOLONE
     Indication: LUPUS NEPHRITIS
     Route: 048
     Dates: start: 20070730, end: 20100420
  12. CICLOSPORIN [Concomitant]
     Active Substance: CYCLOSPORINE

REACTIONS (8)
  - Complement factor C3 decreased [None]
  - Palpitations [None]
  - Osteonecrosis [None]
  - Iron deficiency anaemia [None]
  - DNA antibody positive [None]
  - Chest pain [None]
  - Visual field defect [None]
  - Intentional overdose [None]

NARRATIVE: CASE EVENT DATE: 20080218
